FAERS Safety Report 5678773-X (Version None)
Quarter: 2008Q1

REPORT INFORMATION
  Report Type: 
  Country: None (occurrence: None)
  Receive Date: 20080321
  Receipt Date: 20080310
  Transmission Date: 20080703
  Serious: Yes (Other)
  Sender: FDA-Public Use
  Company Number: 2008-173647-NL

PATIENT
  Sex: Female

DRUGS (1)
  1. IMPLANON [Suspect]
     Dates: start: 20080215

REACTIONS (4)
  - CHLAMYDIAL INFECTION [None]
  - CONVULSION [None]
  - CULTURE POSITIVE [None]
  - POST PROCEDURAL COMPLICATION [None]
